FAERS Safety Report 9806131 (Version 1)
Quarter: 2014Q1

REPORT INFORMATION
  Report Type: Spontaneous
  Country: US (occurrence: US)
  Receive Date: 20140109
  Receipt Date: 20140109
  Transmission Date: 20141002
  Serious: No
  Sender: FDA-Public Use
  Company Number: US-009507513-1401USA000681

PATIENT
  Sex: Female

DRUGS (3)
  1. RIZATRIPTAN BENZOATE TABLET :: NDA 20-864 [Suspect]
     Indication: MIGRAINE
     Dosage: 5 MG, ONE TABLET, PRN
     Route: 048
  2. PREMARIN [Concomitant]
  3. NEXIUM [Concomitant]

REACTIONS (5)
  - Feeling jittery [Recovered/Resolved]
  - Nervousness [Recovered/Resolved]
  - Pruritus [Recovered/Resolved]
  - Insomnia [Recovered/Resolved]
  - Drug ineffective [Unknown]
